FAERS Safety Report 20415592 (Version 2)
Quarter: 2022Q2

REPORT INFORMATION
  Report Type: Report from Study
  Country: JP (occurrence: JP)
  Receive Date: 20220202
  Receipt Date: 20220407
  Transmission Date: 20220721
  Serious: Yes (Hospitalization, Other)
  Sender: FDA-Public Use
  Company Number: JP-NOVARTISPH-NVSJ2022JP002264

PATIENT
  Age: 70 Year
  Sex: Male

DRUGS (1)
  1. TABRECTA [Suspect]
     Active Substance: CAPMATINIB
     Indication: Non-small cell lung cancer
     Dosage: 800 MG
     Route: 048
     Dates: start: 20211215, end: 20220117

REACTIONS (5)
  - Pericarditis malignant [Recovering/Resolving]
  - Cardiac tamponade [Recovered/Resolved]
  - Non-small cell lung cancer [Unknown]
  - Therapeutic product effect incomplete [Unknown]
  - Hepatic function abnormal [Recovered/Resolved]

NARRATIVE: CASE EVENT DATE: 20220117
